FAERS Safety Report 9950401 (Version 1)
Quarter: 2014Q1

REPORT INFORMATION
  Report Type: Report from Study
  Country: US (occurrence: US)
  Receive Date: 20140304
  Receipt Date: 20140304
  Transmission Date: 20141002
  Serious: No
  Sender: FDA-Public Use
  Company Number: US-ABBVIE-13P-163-1070840-00

PATIENT
  Age: 16 Year
  Sex: Male

DRUGS (3)
  1. HUMIRA [Suspect]
     Indication: CROHN^S DISEASE
     Dosage: DAY 1 LOADING DOSE
     Route: 058
     Dates: start: 20130308, end: 20130308
  2. HUMIRA [Suspect]
     Dosage: DAY 15
     Route: 058
     Dates: start: 20130322, end: 20130322
  3. HUMIRA [Suspect]
     Route: 058

REACTIONS (3)
  - Pyrexia [Unknown]
  - Sinusitis [Unknown]
  - Injection site pain [Unknown]
